FAERS Safety Report 24031252 (Version 2)
Quarter: 2024Q3

REPORT INFORMATION
  Report Type: Report from Study
  Country: US (occurrence: US)
  Receive Date: 20240629
  Receipt Date: 20240708
  Transmission Date: 20241016
  Serious: Yes (Other)
  Sender: ABBVIE
  Company Number: US-ABBVIE-5817812

PATIENT
  Sex: Female

DRUGS (1)
  1. RINVOQ [Suspect]
     Active Substance: UPADACITINIB
     Indication: Rheumatoid arthritis
     Route: 048

REACTIONS (9)
  - Wrist fracture [Unknown]
  - Musculoskeletal disorder [Unknown]
  - Fall [Unknown]
  - Arthropathy [Unknown]
  - Malaise [Unknown]
  - Rheumatoid arthritis [Unknown]
  - Inflammation [Unknown]
  - Arthritis [Unknown]
  - Viral infection [Unknown]
